FAERS Safety Report 23180288 (Version 1)
Quarter: 2023Q4

REPORT INFORMATION
  Report Type: Report from Study
  Country: US (occurrence: US)
  Receive Date: 20231114
  Receipt Date: 20231114
  Transmission Date: 20240109
  Serious: Yes (Other)
  Sender: FDA-Public Use
  Company Number: US-ABBVIE-5368435

PATIENT
  Sex: Female
  Weight: 66 kg

DRUGS (1)
  1. SKYRIZI [Suspect]
     Active Substance: RISANKIZUMAB-RZAA
     Indication: Product used for unknown indication
     Dosage: FOUR TIME YT
     Route: 058
     Dates: start: 20230811

REACTIONS (10)
  - Coronary arterial stent insertion [Unknown]
  - Tularaemia [Unknown]
  - Malaise [Recovering/Resolving]
  - Hepatic cirrhosis [Unknown]
  - Fibromyalgia [Unknown]
  - Diabetes mellitus [Unknown]
  - COVID-19 [Unknown]
  - Psoriatic arthropathy [Unknown]
  - Cardiac failure congestive [Unknown]
  - Chronic obstructive pulmonary disease [Unknown]

NARRATIVE: CASE EVENT DATE: 20230101
